FAERS Safety Report 4346445-X (Version None)
Quarter: 2004Q2

REPORT INFORMATION
  Report Type: 
  Country: None (occurrence: None)
  Receive Date: 20040426
  Receipt Date: 20030212
  Transmission Date: 20050107
  Serious: Yes (Hospitalization)
  Sender: FDA-Public Use
  Company Number: US-BRISTOL-MYERS SQUIBB COMPANY-12184818

PATIENT
  Age: 50 Year
  Sex: Female

DRUGS (9)
  1. CARBOPLATIN [Suspect]
     Indication: LUNG NEOPLASM MALIGNANT
     Route: 042
     Dates: start: 20021121, end: 20021121
  2. TAXOL [Concomitant]
  3. TORECAN [Concomitant]
     Dosage: EVERY 6 TO 8 HOURS
  4. OXYCODONE HCL + ACETAMINOPHEN [Concomitant]
     Dosage: 5/325 MG ONE TO TWO TABLETS EVERY 4 TO 6 HOURS
  5. CIMETIDINE HCL [Concomitant]
     Dosage: AT BEDTIME
  6. ACIPHEX [Concomitant]
  7. BENADRYL [Concomitant]
  8. ZOFRAN [Concomitant]
  9. DEXAMETHASONE [Concomitant]

REACTIONS (4)
  - CHEST DISCOMFORT [None]
  - DYSPNOEA [None]
  - FEELING HOT [None]
  - PRURITUS GENERALISED [None]
